FAERS Safety Report 8789300 (Version 1)
Quarter: 2012Q4

REPORT INFORMATION
  Report Type: Spontaneous
  Country: US (occurrence: None)
  Receive Date: 20120905
  Receipt Date: 20120905
  Transmission Date: 20130627
  Serious: Yes (Other)
  Sender: FDA-Public Use
  Company Number: 2012-3875

PATIENT
  Age: 53 Year
  Sex: Female

DRUGS (5)
  1. SOMATULINE DEPOT [Suspect]
     Route: 058
     Dates: end: 20120806
  2. SOMATULINE DEPOT [Suspect]
  3. KLONOPIN (CLONAZEPAM) [Concomitant]
  4. PREMPO (PROVELLA-1-4) [Concomitant]
  5. SOMA (CARISOPRODOL) [Concomitant]

REACTIONS (1)
  - Neoplasm [None]
